FAERS Safety Report 5368316-2 (Version None)
Quarter: 2007Q2

REPORT INFORMATION
  Report Type: 
  Country: None (occurrence: None)
  Receive Date: 20070625
  Receipt Date: 20070613
  Transmission Date: 20071010
  Serious: Yes (Hospitalization)
  Sender: FDA-Public Use
  Company Number: NL-AMGEN-US230562

PATIENT
  Sex: Male

DRUGS (1)
  1. ENBREL [Suspect]
     Indication: RHEUMATOID ARTHRITIS
     Dates: start: 20070526

REACTIONS (5)
  - COGNITIVE DISORDER [None]
  - DIARRHOEA [None]
  - PULMONARY OEDEMA [None]
  - PYREXIA [None]
  - VOMITING [None]
